FAERS Safety Report 23956214 (Version 2)
Quarter: 2024Q4

REPORT INFORMATION
  Report Type: Spontaneous
  Country: US (occurrence: US)
  Receive Date: 20240610
  Receipt Date: 20241112
  Transmission Date: 20250114
  Serious: No
  Sender: SANOFI AVENTIS
  Company Number: US-SA-SAC20240604000118

PATIENT
  Age: 85 Year
  Sex: Female
  Weight: 66.67 kg

DRUGS (11)
  1. DUPIXENT [Suspect]
     Active Substance: DUPILUMAB
     Indication: Dermatitis atopic
     Dosage: 300 MG, QOW
     Route: 058
     Dates: start: 20240518, end: 2024
  2. DUPIXENT [Suspect]
     Active Substance: DUPILUMAB
     Indication: Neurodermatitis
  3. DUPIXENT [Suspect]
     Active Substance: DUPILUMAB
     Indication: Dermatitis allergic
  4. ISOSORBIDE DINITRATE [Concomitant]
     Active Substance: ISOSORBIDE DINITRATE
     Dosage: UNK
  5. CANDESARTAN CILEXETIL [Concomitant]
     Active Substance: CANDESARTAN CILEXETIL
     Dosage: UNK
  6. IBANDRONATE SODIUM [Concomitant]
     Active Substance: IBANDRONATE SODIUM
  7. AMLODIPINE BESYLATE [Concomitant]
     Active Substance: AMLODIPINE BESYLATE
  8. LEVOTHYROXINE SODIUM [Concomitant]
     Active Substance: LEVOTHYROXINE SODIUM
  9. POTASSIUM CHLORIDE [Concomitant]
     Active Substance: POTASSIUM CHLORIDE
  10. FUROSEMIDE [Concomitant]
     Active Substance: FUROSEMIDE
  11. ATORVASTATIN CALCIUM [Concomitant]
     Active Substance: ATORVASTATIN CALCIUM

REACTIONS (2)
  - Pruritus [Recovered/Resolved]
  - Drug ineffective [Unknown]

NARRATIVE: CASE EVENT DATE: 20240101
